FAERS Safety Report 17570929 (Version 1)
Quarter: 2020Q1

REPORT INFORMATION
  Report Type: Spontaneous
  Country: US (occurrence: US)
  Receive Date: 20200323
  Receipt Date: 20200323
  Transmission Date: 20200409
  Serious: Yes (Other)
  Sender: FDA-Public Use
  Company Number: US-ACCORD-176709

PATIENT
  Sex: Female
  Weight: 56.7 kg

DRUGS (1)
  1. PRASUGREL. [Suspect]
     Active Substance: PRASUGREL
     Indication: CARDIAC DISORDER
     Dosage: STRENGTH: 5 MG
     Route: 048

REACTIONS (1)
  - Coeliac disease [Not Recovered/Not Resolved]
